FAERS Safety Report 23466074 (Version 1)
Quarter: 2024Q1

REPORT INFORMATION
  Report Type: Spontaneous
  Country: US (occurrence: None)
  Receive Date: 20240131
  Receipt Date: 20240131
  Transmission Date: 20240410
  Serious: Yes (Hospitalization)
  Sender: FDA-Public Use
  Company Number: None

PATIENT
  Sex: Female

DRUGS (21)
  1. PERTZYE [Suspect]
     Active Substance: PANCRELIPASE AMYLASE\PANCRELIPASE LIPASE\PANCRELIPASE PROTEASE
     Indication: Cystic fibrosis
     Dosage: OTHER QUANTITY : 24000-86250 UNIT;?FREQUENCY : DAILY;?
     Route: 048
     Dates: start: 20201020
  2. ADVAIR HFA [Concomitant]
  3. ALBUTEROL [Concomitant]
     Active Substance: ALBUTEROL
  4. BETHKIS NEB [Concomitant]
  5. CYPROHEPTAD [Concomitant]
  6. CYPROHEPTADINE [Concomitant]
     Active Substance: CYPROHEPTADINE
  7. DEKAS PLUS CHEWABLES [Concomitant]
  8. EPINEPHRINE [Concomitant]
     Active Substance: EPINEPHRINE
  9. FAMOTIDINE [Concomitant]
     Active Substance: FAMOTIDINE
  10. FLUTICASONE SPR [Concomitant]
  11. A-HYDROCORT [Concomitant]
     Active Substance: HYDROCORTISONE SODIUM SUCCINATE
  12. LORATADINE [Concomitant]
     Active Substance: LORATADINE
  13. MVW COMPLETE CHW ORANGE [Concomitant]
  14. OMEPRAZOLE [Concomitant]
     Active Substance: OMEPRAZOLE
  15. PREDNISONE [Concomitant]
     Active Substance: PREDNISONE
  16. PULMOZYME SOL [Concomitant]
  17. SOD CHL NEB [Concomitant]
  18. TOBI PODHALER [Concomitant]
     Active Substance: TOBRAMYCIN
  19. TRIKAFTA [Concomitant]
     Active Substance: ELEXACAFTOR\IVACAFTOR\TEZACAFTOR
  20. VITAMIN D3 [Concomitant]
     Active Substance: CHOLECALCIFEROL
  21. XOLAIR [Concomitant]
     Active Substance: OMALIZUMAB

REACTIONS (1)
  - Infective pulmonary exacerbation of cystic fibrosis [None]
